FAERS Safety Report 11365919 (Version 3)
Quarter: 2016Q4

REPORT INFORMATION
  Report Type: Spontaneous
  Country: US (occurrence: US)
  Receive Date: 20150811
  Receipt Date: 20161003
  Transmission Date: 20170206
  Serious: No
  Sender: FDA-Public Use
  Company Number: US-BAYER-2015-390518

PATIENT
  Sex: Female
  Weight: 106.12 kg

DRUGS (6)
  1. BRIMONIDINE [Concomitant]
     Active Substance: BRIMONIDINE TARTRATE
     Indication: GLAUCOMA
     Dosage: 400 MG, UNK
     Dates: start: 20100928, end: 20101005
  2. LEVAQUIN [Suspect]
     Active Substance: LEVOFLOXACIN
     Dosage: UNK
  3. LATANOPROST. [Concomitant]
     Active Substance: LATANOPROST
     Indication: GLAUCOMA
     Dosage: UNK UNK, QD
  4. AVELOX [Suspect]
     Active Substance: MOXIFLOXACIN HYDROCHLORIDE
     Indication: SINOBRONCHITIS
     Dosage: UNK
     Dates: start: 201009
  5. BRIMONIDINE [Concomitant]
     Active Substance: BRIMONIDINE TARTRATE
     Indication: GLAUCOMA
     Dosage: 400 MG, TID
     Dates: start: 20100703, end: 20100710
  6. BRIMONIDINE [Concomitant]
     Active Substance: BRIMONIDINE TARTRATE
     Indication: GLAUCOMA
     Dosage: 400 MG, UNK
     Dates: start: 20101021, end: 20101028

REACTIONS (7)
  - Pain [None]
  - Emotional distress [Not Recovered/Not Resolved]
  - Hypoaesthesia [None]
  - Injury [Not Recovered/Not Resolved]
  - Emotional distress [None]
  - Neuropathy peripheral [Not Recovered/Not Resolved]
  - Neuropathy peripheral [None]
